FAERS Safety Report 11606505 (Version 1)
Quarter: 2015Q4

REPORT INFORMATION
  Report Type: Spontaneous
  Country: US (occurrence: US)
  Receive Date: 20151007
  Receipt Date: 20151007
  Transmission Date: 20160304
  Serious: Yes (Death, Hospitalization)
  Sender: FDA-Public Use
  Company Number: US-PERRIGO-15US010202

PATIENT
  Age: 25 Year
  Sex: Female

DRUGS (1)
  1. GOOD NEIGHBOR PHARMACY ANTI DIARRHEAL [Suspect]
     Active Substance: LOPERAMIDE HYDROCHLORIDE
     Indication: DRUG ABUSE
     Dosage: UNKNOWN, UNKNOWN
     Route: 048

REACTIONS (15)
  - Drug abuse [Fatal]
  - Electrocardiogram QRS complex prolonged [Recovered/Resolved]
  - Abdominal discomfort [Recovered/Resolved]
  - Cardio-respiratory arrest [Fatal]
  - Acute respiratory failure [Recovered/Resolved]
  - Cardiogenic shock [Recovered/Resolved]
  - Ventricular tachycardia [Recovered/Resolved]
  - Vomiting [Recovered/Resolved]
  - Syncope [Recovered/Resolved]
  - Electrocardiogram QT prolonged [Recovered/Resolved]
  - Electrocardiogram T wave abnormal [Recovered/Resolved]
  - Nausea [Recovered/Resolved]
  - Bradycardia [Recovered/Resolved]
  - Haemodynamic instability [Recovered/Resolved]
  - Defect conduction intraventricular [Recovered/Resolved]
